FAERS Safety Report 16360813 (Version 2)
Quarter: 2020Q3

REPORT INFORMATION
  Report Type: Report from Study
  Country: US (occurrence: US)
  Receive Date: 20190528
  Receipt Date: 20200717
  Transmission Date: 20201102
  Serious: Yes (Hospitalization)
  Sender: FDA-Public Use
  Company Number: US-ROCHE-2307180

PATIENT
  Age: 71 Year
  Sex: Male
  Weight: 85.4 kg

DRUGS (29)
  1. VENETOCLAX. [Suspect]
     Active Substance: VENETOCLAX
     Indication: RICHTER^S SYNDROME
     Route: 048
     Dates: start: 20190508, end: 20190517
  2. ETOPOSIDE. [Suspect]
     Active Substance: ETOPOSIDE
     Indication: RICHTER^S SYNDROME
     Dosage: ONCE IN 24 HOURS FOR 4 DAYS
     Route: 042
     Dates: start: 20190508, end: 20190513
  3. CYCLOPHOSPHAMIDE. [Suspect]
     Active Substance: CYCLOPHOSPHAMIDE
     Indication: RICHTER^S SYNDROME
     Dosage: ONCE
     Route: 042
     Dates: start: 20190513
  4. BACTRIM [Concomitant]
     Active Substance: SULFAMETHOXAZOLE\TRIMETHOPRIM
  5. ETOPOSIDE. [Suspect]
     Active Substance: ETOPOSIDE
     Indication: CHRONIC LYMPHOCYTIC LEUKAEMIA
     Route: 042
     Dates: start: 20190407, end: 20190410
  6. METFORMIN [Concomitant]
     Active Substance: METFORMIN HYDROCHLORIDE
  7. DOCUSATE SODIUM;SENNA [Concomitant]
     Active Substance: DOCUSATE SODIUM\SENNOSIDES
  8. GLIMEPIRIDE. [Concomitant]
     Active Substance: GLIMEPIRIDE
  9. RITUXIMAB. [Suspect]
     Active Substance: RITUXIMAB
     Indication: RICHTER^S SYNDROME
     Dosage: ONCE
     Route: 042
     Dates: start: 20190508
  10. ONCOVIN [Suspect]
     Active Substance: VINCRISTINE SULFATE
     Indication: RICHTER^S SYNDROME
     Route: 042
     Dates: start: 20190508, end: 20190513
  11. CLARITIN [Concomitant]
     Active Substance: LORATADINE
  12. ZOFRAN [Concomitant]
     Active Substance: ONDANSETRON HYDROCHLORIDE
  13. RITUXIMAB. [Suspect]
     Active Substance: RITUXIMAB
     Indication: CHRONIC LYMPHOCYTIC LEUKAEMIA
     Route: 041
     Dates: start: 20181213
  14. ONCOVIN [Suspect]
     Active Substance: VINCRISTINE SULFATE
     Indication: CHRONIC LYMPHOCYTIC LEUKAEMIA
     Route: 042
     Dates: start: 20190407, end: 20190410
  15. LISINOPRIL. [Concomitant]
     Active Substance: LISINOPRIL
  16. TYLENOL [Concomitant]
     Active Substance: ACETAMINOPHEN
  17. LEVAQUIN [Concomitant]
     Active Substance: LEVOFLOXACIN
  18. MAG OXIDE [Concomitant]
     Active Substance: MAGNESIUM OXIDE
  19. ALLOPURINOL. [Concomitant]
     Active Substance: ALLOPURINOL
  20. PROTONIX [Concomitant]
     Active Substance: PANTOPRAZOLE SODIUM
  21. FLONASE [Concomitant]
     Active Substance: FLUTICASONE PROPIONATE
  22. LOPRESSOR [Concomitant]
     Active Substance: METOPROLOL TARTRATE
  23. MAXIPIME [Concomitant]
     Active Substance: CEFEPIME HYDROCHLORIDE
  24. XANAX [Concomitant]
     Active Substance: ALPRAZOLAM
  25. DOXORUBICIN [Suspect]
     Active Substance: DOXORUBICIN
     Indication: RICHTER^S SYNDROME
     Route: 042
     Dates: start: 20190508, end: 20190513
  26. HUMALOG [Concomitant]
     Active Substance: INSULIN LISPRO
  27. PREDNISONE. [Suspect]
     Active Substance: PREDNISONE
     Indication: CHRONIC LYMPHOCYTIC LEUKAEMIA
     Route: 048
     Dates: start: 20190407, end: 20190410
  28. PREDNISONE. [Suspect]
     Active Substance: PREDNISONE
     Indication: RICHTER^S SYNDROME
     Route: 048
     Dates: start: 20190508, end: 20190513
  29. MIRALAX [Concomitant]
     Active Substance: POLYETHYLENE GLYCOL 3350

REACTIONS (2)
  - Febrile neutropenia [Recovered/Resolved]
  - Acute sinusitis [Recovered/Resolved]

NARRATIVE: CASE EVENT DATE: 20190417
